FAERS Safety Report 18026926 (Version 2)
Quarter: 2020Q3

REPORT INFORMATION
  Report Type: Spontaneous
  Country: CH (occurrence: CH)
  Receive Date: 20200715
  Receipt Date: 20200724
  Transmission Date: 20201103
  Serious: Yes (Life-Threatening, Hospitalization, Other)
  Sender: FDA-Public Use
  Company Number: CH-PFIZER INC-2020267763

PATIENT
  Age: 52 Year
  Sex: Male

DRUGS (32)
  1. MEROPENEM. [Suspect]
     Active Substance: MEROPENEM
     Dosage: 1?2G DAILY
     Route: 042
     Dates: start: 20200523, end: 20200604
  2. NEXIUM [Suspect]
     Active Substance: ESOMEPRAZOLE MAGNESIUM
     Dosage: 80 MG INJEKTIONS? /INFUSIONSPRAPARAT, POWDER FOR SOLUTION FOR INJECTION/INFUSION, INTRAVENOUS)
     Route: 042
     Dates: start: 20200504, end: 20200606
  3. RYDAPT [Suspect]
     Active Substance: MIDOSTAURIN
     Indication: ACUTE MYELOID LEUKAEMIA
     Dosage: 50 MG, 1X/DAY
     Route: 048
     Dates: start: 20200515, end: 20200519
  4. MIDAZOLAMUM [Concomitant]
     Active Substance: MIDAZOLAM HYDROCHLORIDE
     Dosage: 500 MG, RESERVE ABOUT 0.5MG UP TO MAX. 3G A DAY.
     Dates: start: 20200505, end: 20200606
  5. NEXIUM [Suspect]
     Active Substance: ESOMEPRAZOLE MAGNESIUM
     Dosage: UNK VARIABLE DOSAGE OF 40?80MG
     Route: 048
     Dates: start: 20200504, end: 20200606
  6. LITALIR [Suspect]
     Active Substance: HYDROXYUREA
     Indication: ACUTE MYELOID LEUKAEMIA
     Dosage: 2000 MG, 1X/DAY
     Route: 048
     Dates: start: 20200504, end: 20200507
  7. CEFEPIME [Concomitant]
     Active Substance: CEFEPIME HYDROCHLORIDE
     Dosage: 1000 MG, DAILY
     Route: 042
     Dates: start: 20200504, end: 20200511
  8. CIPROXIN [CIPROFLOXACIN] [Concomitant]
     Dosage: 200 MG, 2X/DAY
     Route: 042
     Dates: start: 20200519, end: 20200522
  9. ZAVEDOS [Suspect]
     Active Substance: IDARUBICIN
     Indication: ACUTE MYELOID LEUKAEMIA
     Dosage: 22.5 MG, 1X/DAY
     Route: 042
     Dates: start: 20200508, end: 20200514
  10. NEXIUM [Suspect]
     Active Substance: ESOMEPRAZOLE MAGNESIUM
     Dosage: 80 UNK
     Dates: start: 20200504, end: 20200606
  11. NOXAFIL [Suspect]
     Active Substance: POSACONAZOLE
     Dosage: 300 MG, DAILY
     Dates: start: 20200508, end: 20200604
  12. PREDNISOLON [PREDNISOLONE] [Concomitant]
     Active Substance: PREDNISOLONE
     Dosage: 125 MG, DAILY
     Dates: start: 20200508, end: 20200514
  13. CEFEPIME [Concomitant]
     Active Substance: CEFEPIME HYDROCHLORIDE
     Dosage: 1000 MG, DAILY
     Route: 042
     Dates: start: 20200515, end: 20200519
  14. NEXIUM [Suspect]
     Active Substance: ESOMEPRAZOLE MAGNESIUM
     Dosage: 40 MG (VARIABLE DOSAGE OF 40?80 MG)
     Route: 042
     Dates: start: 20200504, end: 20200606
  15. KONAKION [Concomitant]
     Active Substance: PHYTONADIONE
     Dosage: VARIABLE DOSAGE ACCORDING TO INR
     Dates: start: 20200507, end: 20200519
  16. ONDANSETRONUM [Concomitant]
     Active Substance: ONDANSETRON
     Dosage: VARIABLE INTAKE
     Route: 048
     Dates: start: 20200508, end: 20200519
  17. KETAMINE [Concomitant]
     Active Substance: KETAMINE
     Dosage: 250 MG, DAILY
     Route: 042
     Dates: start: 20200603, end: 20200606
  18. ACICLOVIR [Suspect]
     Active Substance: ACYCLOVIR
     Dosage: 200 MG
     Dates: start: 20200520, end: 20200611
  19. MORPHIN [Suspect]
     Active Substance: MORPHINE
     Dosage: VARIABLE DOSAGE, 0?20MG IN RESERVE DAILY, AS WELL AS VARIABLE FIXED MEDICATION, MAXIMUM IN TOTAL
     Dates: start: 20200505, end: 20200526
  20. HEPARIN CALCIUM [Suspect]
     Active Substance: HEPARIN CALCIUM
     Dosage: 5000 IU, 2X/DAY
     Route: 058
     Dates: start: 20200530, end: 20200603
  21. VALTREX [Suspect]
     Active Substance: VALACYCLOVIR HYDROCHLORIDE
     Dosage: 500 MG, 2X/DAY
     Dates: start: 20200508, end: 20200519
  22. METOCLOPRAMID [METOCLOPRAMIDE HYDROCHLORIDE] [Concomitant]
     Dosage: 10 MG, 3X/DAY
     Dates: start: 20200520, end: 20200520
  23. METAMIZOLE [Concomitant]
     Active Substance: METAMIZOLE
     Dosage: 500 MG, EVERY 4 HOURS
     Dates: start: 20200515, end: 20200606
  24. CYTOSAR [Suspect]
     Active Substance: CYTARABINE
     Indication: ACUTE MYELOID LEUKAEMIA
     Dosage: 370 MG, DAILY
     Route: 042
     Dates: start: 20200508, end: 20200514
  25. NALOXONE [Concomitant]
     Active Substance: NALOXONE
     Dosage: ABOUT 0.4MG UNTIL SYMPTOMS IMPROVE
     Dates: start: 20200521, end: 20200603
  26. METRONIDAZOLE. [Suspect]
     Active Substance: METRONIDAZOLE
     Dosage: 500 MG
     Route: 042
     Dates: start: 20200525, end: 20200529
  27. DAPTOMYCINE [Suspect]
     Active Substance: DAPTOMYCIN
     Dosage: 700 MG, ALTERNATE DAY
     Route: 042
     Dates: start: 20200523, end: 20200603
  28. METRONIDAZOLE. [Suspect]
     Active Substance: METRONIDAZOLE
     Dosage: 500 MG, 3X/DAY
     Route: 048
     Dates: start: 20200515, end: 20200519
  29. PIPERACILLIN SODIUM/TAZOBACTAM [Concomitant]
     Active Substance: PIPERACILLIN SODIUM\TAZOBACTAM SODIUM
     Dosage: VARIABLE DOSAGE OF KIDNEY FUNCTION ADJUSTED FROM 2.25MG 1?1?1 DAILY UP TO A TOTAL OF 9MG DAY
     Route: 042
     Dates: start: 20200519, end: 20200523
  30. PIPERACILLIN SODIUM/TAZOBACTAM [Concomitant]
     Active Substance: PIPERACILLIN SODIUM\TAZOBACTAM SODIUM
     Dosage: UNK
     Dates: start: 20200606
  31. LORAZEPAM. [Concomitant]
     Active Substance: LORAZEPAM
     Dosage: 1 MG (RESERVE MEDICATION ABOUT 1MG, MAXIMUM 1MG DAILY)
  32. PARACETAMOL [Concomitant]
     Active Substance: ACETAMINOPHEN
     Dosage: 0.5?4G DAILY
     Dates: start: 20200505, end: 20200529

REACTIONS (10)
  - Overdose [Recovered/Resolved]
  - Renal failure [Unknown]
  - Cholestasis [Unknown]
  - Uraemic encephalopathy [Unknown]
  - Drug-induced liver injury [Recovering/Resolving]
  - Shock haemorrhagic [Recovered/Resolved]
  - Pancytopenia [Recovering/Resolving]
  - Neutropenic colitis [Recovered/Resolved]
  - Intestinal haemorrhage [Recovered/Resolved]
  - Febrile neutropenia [Recovered/Resolved]

NARRATIVE: CASE EVENT DATE: 202005
